FAERS Safety Report 8491464 (Version 4)
Quarter: 2014Q2

REPORT INFORMATION
  Report Type: Spontaneous
  Country: US (occurrence: US)
  Receive Date: 20120403
  Receipt Date: 20140410
  Transmission Date: 20141212
  Serious: Yes (Other)
  Sender: FDA-Public Use
  Company Number: US-ASTRAZENECA-2012SE20214

PATIENT
  Age: 65 Year
  Sex: Female
  Weight: 65.8 kg

DRUGS (35)
  1. SEROQUEL [Suspect]
     Indication: MENTAL DISORDER
     Route: 048
     Dates: start: 2004
  2. SEROQUEL [Suspect]
     Indication: DEPRESSION
     Route: 048
     Dates: start: 2004
  3. SEROQUEL [Suspect]
     Indication: BIPOLAR DISORDER
     Route: 048
     Dates: start: 2004
  4. SEROQUEL [Suspect]
     Indication: MENTAL DISORDER
     Dosage: TWICE A DAY
     Route: 048
     Dates: end: 201110
  5. SEROQUEL [Suspect]
     Indication: DEPRESSION
     Dosage: TWICE A DAY
     Route: 048
     Dates: end: 201110
  6. SEROQUEL [Suspect]
     Indication: BIPOLAR DISORDER
     Dosage: TWICE A DAY
     Route: 048
     Dates: end: 201110
  7. SEROQUEL [Suspect]
     Indication: MENTAL DISORDER
     Route: 048
  8. SEROQUEL [Suspect]
     Indication: DEPRESSION
     Route: 048
  9. SEROQUEL [Suspect]
     Indication: BIPOLAR DISORDER
     Route: 048
  10. LISINOPRIL [Suspect]
     Indication: HYPERTENSION
     Route: 048
     Dates: start: 2012
  11. CLONAZEPAM [Suspect]
     Dosage: 3 TIMES A DAY
     Route: 065
  12. ZOLPIDEM [Concomitant]
     Indication: SLEEP DISORDER
  13. GABAPENTIN [Concomitant]
     Indication: PAIN
     Route: 048
     Dates: start: 2010
  14. POT CHLOR ER [Concomitant]
     Indication: NERVOUS SYSTEM DISORDER
     Route: 048
  15. POT CHLOR ER [Concomitant]
     Indication: NERVOUS SYSTEM DISORDER
     Route: 048
  16. LOVAZA [Concomitant]
     Indication: BLOOD CHOLESTEROL ABNORMAL
     Route: 048
     Dates: start: 2009
  17. VENLAFAXINE [Concomitant]
     Indication: DEPRESSION
  18. VENLAFAXINE [Concomitant]
     Indication: DEPRESSION
     Dates: start: 2007
  19. ADVIR [Concomitant]
     Dosage: 250/50
  20. HYDROCO-APAP [Concomitant]
  21. TIZANIDINE [Concomitant]
     Route: 048
  22. ROPINIROLE [Concomitant]
  23. DETROL [Concomitant]
     Route: 048
  24. METFORMIN [Concomitant]
     Indication: DIABETES MELLITUS
     Dates: start: 2010
  25. NORCO [Concomitant]
  26. VICODIN [Concomitant]
  27. EFFEXOR [Concomitant]
  28. PAIN PATCH [Concomitant]
  29. VALIUM [Concomitant]
  30. SIMVASTATIN [Concomitant]
     Indication: BLOOD CHOLESTEROL ABNORMAL
  31. VOLZOTIDEM (GENERIC OF AMBIEN) [Concomitant]
     Indication: SLEEP DISORDER
  32. RELAFEN [Concomitant]
     Indication: PAIN
     Dates: start: 201403
  33. GLIPIZIDE [Concomitant]
     Dates: start: 201401
  34. JANUVIA [Concomitant]
     Indication: GASTRIC DISORDER
     Dates: start: 2013
  35. MEDICATION FOR MOOD [Concomitant]
     Dosage: TWICE DAILY
     Dates: start: 2008

REACTIONS (9)
  - Osteoporosis [Unknown]
  - Diabetes mellitus [Unknown]
  - Hypertension [Recovering/Resolving]
  - Fibromyalgia [Unknown]
  - Depression [Unknown]
  - Blood cholesterol abnormal [Unknown]
  - Malaise [Recovering/Resolving]
  - Blood cholesterol increased [Recovering/Resolving]
  - Intentional product misuse [Unknown]
